FAERS Safety Report 16944466 (Version 2)
Quarter: 2019Q4

REPORT INFORMATION
  Report Type: Spontaneous
  Country: FR (occurrence: FR)
  Receive Date: 20191022
  Receipt Date: 20191223
  Transmission Date: 20200122
  Serious: Yes (Hospitalization)
  Sender: FDA-Public Use
  Company Number: FR-SUN PHARMACEUTICAL INDUSTRIES LTD-2019RR-224626

PATIENT
  Age: 45 Year
  Sex: Male

DRUGS (3)
  1. GIROFLE (HUILE ESSENTIELLE DE) [Suspect]
     Active Substance: CLOVE OIL
     Indication: TOOTHACHE
     Dosage: ()
     Route: 048
     Dates: start: 201811, end: 201811
  2. PARACETAMOL [Suspect]
     Active Substance: ACETAMINOPHEN
     Indication: TOOTHACHE
     Dosage: ()
     Route: 048
     Dates: start: 20181111, end: 20181114
  3. NUROFEN [Suspect]
     Active Substance: IBUPROFEN
     Indication: TOOTHACHE
     Dosage: ()
     Route: 048
     Dates: start: 20181111, end: 20181114

REACTIONS (1)
  - Anaphylactic shock [Recovered/Resolved]

NARRATIVE: CASE EVENT DATE: 20181114
